FAERS Safety Report 8817875 (Version 3)
Quarter: 2012Q4

REPORT INFORMATION
  Report Type: 
  Country: ZA (occurrence: ZA)
  Receive Date: 20121004
  Receipt Date: 20121105
  Transmission Date: 20130627
  Serious: Yes (Other)
  Sender: FDA-Public Use
  Company Number: ZA-B.I. PHARMACEUTICALS,INC./RIDGEFIELD-2012-AP-00814ZA

PATIENT
  Age: 48 Year
  Sex: Male
  Weight: 90 kg

DRUGS (3)
  1. PRADAXA [Suspect]
     Indication: THROMBOSIS PROPHYLAXIS
     Dosage: 220 mg
     Route: 048
     Dates: start: 20120914, end: 20120926
  2. PRADAXA [Suspect]
     Indication: KNEE ARTHROPLASTY
  3. TRAMACET [Concomitant]
     Indication: ANALGESIC THERAPY
     Dosage: 2 six hourly
     Dates: start: 20120912

REACTIONS (1)
  - Deep vein thrombosis [Unknown]
